FAERS Safety Report 25668408 (Version 1)
Quarter: 2025Q3

REPORT INFORMATION
  Report Type: Spontaneous
  Country: GB (occurrence: GB)
  Receive Date: 20250812
  Receipt Date: 20250812
  Transmission Date: 20251021
  Serious: Yes (Other)
  Sender: NOBELPHARMA
  Company Number: GB-PUP UK-2025-AER-01375

PATIENT
  Age: 7 Decade
  Sex: Female

DRUGS (2)
  1. HYFTOR [Suspect]
     Active Substance: SIROLIMUS
  2. PREDNISOLONE [Suspect]
     Active Substance: PREDNISOLONE

REACTIONS (4)
  - Mycobacterium chelonae infection [Recovering/Resolving]
  - Skin bacterial infection [Recovering/Resolving]
  - Atypical mycobacterial pneumonia [Recovering/Resolving]
  - Pneumothorax [Recovering/Resolving]
